FAERS Safety Report 17156111 (Version 1)
Quarter: 2019Q4

REPORT INFORMATION
  Report Type: Spontaneous
  Country: US (occurrence: US)
  Receive Date: 20191216
  Receipt Date: 20191216
  Transmission Date: 20200122
  Serious: No
  Sender: FDA-Public Use
  Company Number: US-UCBSA-2015024498

PATIENT
  Age: 32 Year
  Sex: Female
  Weight: 61 kg

DRUGS (4)
  1. PRENATAL [Concomitant]
     Active Substance: VITAMINS
     Indication: SUPPLEMENTATION THERAPY
     Dosage: 2 DF, UNK Q AM, DAILY
     Dates: start: 20140112
  2. CIMZIA [Suspect]
     Active Substance: CERTOLIZUMAB PEGOL
     Indication: CROHN^S DISEASE
     Dosage: 400 MG, EV 2 WEEKS(QOW)
     Route: 058
     Dates: start: 201308, end: 2015
  3. IRON [Concomitant]
     Active Substance: IRON
     Indication: ANAEMIA
     Dosage: 1 DF, UNK, 1 TAB AM
     Dates: start: 20150102, end: 20150409
  4. PRENATAL VITAMINS [Concomitant]
     Active Substance: VITAMINS
     Indication: VITAMIN SUPPLEMENTATION
     Dosage: 200 MG, ONCE DAILY (QD)
     Route: 048
     Dates: start: 20150105, end: 20150904

REACTIONS (3)
  - Crohn^s disease [Unknown]
  - Maternal exposure during pregnancy [Unknown]
  - Maternal exposure during breast feeding [Unknown]

NARRATIVE: CASE EVENT DATE: 20141120
